FAERS Safety Report 17261932 (Version 1)
Quarter: 2020Q1

REPORT INFORMATION
  Report Type: Spontaneous
  Country: US (occurrence: US)
  Receive Date: 20200110
  Receipt Date: 20200110
  Transmission Date: 20200409
  Serious: Yes (Other)
  Sender: FDA-Public Use
  Company Number: None

PATIENT
  Age: 31 Year
  Sex: Male
  Weight: 63 kg

DRUGS (1)
  1. BUPROPION GENERIC SR [Suspect]
     Active Substance: BUPROPION
     Indication: MAJOR DEPRESSION
     Route: 048
     Dates: start: 20190919, end: 20191229

REACTIONS (8)
  - Apathy [None]
  - Anger [None]
  - Irritability [None]
  - Disturbance in attention [None]
  - Suicidal ideation [None]
  - Depressed mood [None]
  - Decreased interest [None]
  - Depression [None]

NARRATIVE: CASE EVENT DATE: 20191229
